FAERS Safety Report 4267039-0 (Version None)
Quarter: 2004Q1

REPORT INFORMATION
  Report Type: 
  Country: None (occurrence: None)
  Receive Date: 20040107
  Receipt Date: 20031223
  Transmission Date: 20041129
  Serious: Yes (Other)
  Sender: FDA-Public Use
  Company Number: ZANA001119

PATIENT
  Age: 32 Year
  Sex: Male

DRUGS (2)
  1. ZANAFLEX [Suspect]
     Indication: ABDOMINAL PAIN
  2. MS CONTIN [Suspect]
     Indication: ABDOMINAL PAIN
     Dosage: 90 MG DAILY ORAL
     Route: 048
     Dates: end: 20020701

REACTIONS (8)
  - ACINETOBACTER INFECTION [None]
  - ASTHENIA [None]
  - CATHETER RELATED INFECTION [None]
  - CONSTIPATION [None]
  - FAECAL INCONTINENCE [None]
  - MYELITIS TRANSVERSE [None]
  - PARAESTHESIA [None]
  - URINARY INCONTINENCE [None]
